FAERS Safety Report 23214436 (Version 1)
Quarter: 2023Q4

REPORT INFORMATION
  Report Type: Spontaneous
  Country: CA (occurrence: CA)
  Receive Date: 20231121
  Receipt Date: 20231121
  Transmission Date: 20240109
  Serious: Yes (Disabling)
  Sender: FDA-Public Use
  Company Number: CA-TEVA-2023-CA-2948495

PATIENT
  Age: 32 Year
  Sex: Male
  Weight: 75 kg

DRUGS (1)
  1. CIPROFLOXACIN [Suspect]
     Active Substance: CIPROFLOXACIN
     Indication: Urinary tract infection
     Route: 048

REACTIONS (8)
  - Arthralgia [Recovering/Resolving]
  - Burning sensation [Recovering/Resolving]
  - Fatigue [Recovering/Resolving]
  - Neuropathy peripheral [Recovering/Resolving]
  - Pain in extremity [Recovering/Resolving]
  - Tendon disorder [Recovering/Resolving]
  - Tendon pain [Recovering/Resolving]
  - Tendonitis [Recovering/Resolving]
